FAERS Safety Report 10032420 (Version 1)
Quarter: 2014Q1

REPORT INFORMATION
  Report Type: Spontaneous
  Country: PT (occurrence: None)
  Receive Date: 20140320
  Receipt Date: 20140320
  Transmission Date: 20141002
  Serious: Yes (Other)
  Sender: FDA-Public Use
  Company Number: PT-DEXPHARM-20140106

PATIENT
  Age: 62 Year
  Sex: Male

DRUGS (1)
  1. DICLOFENAC [Suspect]
     Indication: MUSCULOSKELETAL PAIN
     Dosage: 75MG SEP. DOSAGES/INTERVAL 1 IN 1 DAYS

REACTIONS (1)
  - Kounis syndrome [None]
